FAERS Safety Report 7421196-3 (Version None)
Quarter: 2011Q2

REPORT INFORMATION
  Report Type: 
  Country: None (occurrence: None)
  Receive Date: 20110407
  Receipt Date: 20110323
  Transmission Date: 20111010
  Serious: Yes (Hospitalization)
  Sender: FDA-Public Use
  Company Number: GER/USA/11/0017852

PATIENT
  Age: 11 Year
  Sex: Male

DRUGS (2)
  1. LAMOTRIGINE [Suspect]
     Indication: PETIT MAL EPILEPSY
     Dosage: 5.5 MG/KG, 1 IN 1 D; 7 MG/KG, 1 D; 4 MG/KG, 1 D
  2. VALPROIC ACID [Concomitant]

REACTIONS (3)
  - OCULOGYRIC CRISIS [None]
  - OVERDOSE [None]
  - EXCESSIVE EYE BLINKING [None]
